FAERS Safety Report 7507894-1 (Version None)
Quarter: 2011Q2

REPORT INFORMATION
  Report Type: 
  Country: None (occurrence: None)
  Receive Date: 20110527
  Receipt Date: 20110518
  Transmission Date: 20111010
  Serious: No
  Sender: FDA-Public Use
  Company Number: US-BIOGENIDEC-2011BI019126

PATIENT
  Age: 29 Year
  Sex: Male

DRUGS (2)
  1. AVONEX [Suspect]
     Indication: MULTIPLE SCLEROSIS
     Route: 030
     Dates: start: 20110413
  2. AVONEX [Suspect]
     Route: 030
     Dates: start: 20000804, end: 20060724

REACTIONS (2)
  - MANIA [None]
  - INSOMNIA [None]
